FAERS Safety Report 5963295-9 (Version None)
Quarter: 2008Q4

REPORT INFORMATION
  Report Type: 
  Country: None (occurrence: None)
  Receive Date: 20081119
  Receipt Date: 20080904
  Transmission Date: 20090506
  Serious: No
  Sender: FDA-Public Use
  Company Number: WAES 0809USA00746

PATIENT
  Age: 61 Year
  Sex: Female

DRUGS (7)
  1. JANUVIA [Suspect]
     Indication: TYPE 2 DIABETES MELLITUS
     Dosage: 100 MG/DAILY/PO
     Route: 048
     Dates: start: 20080828
  2. HYDRODIURIL [Concomitant]
  3. LIPITOR [Concomitant]
  4. VASOTEC [Concomitant]
  5. AMLODIPINE [Concomitant]
  6. ATENOLOL [Concomitant]
  7. MINOXIDIL [Concomitant]

REACTIONS (2)
  - BLOOD GLUCOSE INCREASED [None]
  - NASOPHARYNGITIS [None]
